FAERS Safety Report 5258862-4 (Version None)
Quarter: 2007Q1

REPORT INFORMATION
  Report Type: 
  Country: None (occurrence: None)
  Receive Date: 20070308
  Receipt Date: 20070228
  Transmission Date: 20070707
  Serious: Yes (Other)
  Sender: FDA-Public Use
  Company Number: US-ROCHE-477196

PATIENT
  Sex: Male

DRUGS (2)
  1. XELODA [Suspect]
     Indication: COLON CANCER
     Dosage: THE PATIENT COMPLETED 5 CYCLES OF XELODA AND WAS IN HIS 6TH CYCLE OF TREATMENT.
     Route: 048
  2. XELODA [Suspect]
     Dosage: THE PATIENT COMPLETED ADJUVANT TREATMENT.  XELODA THERAPY WAS CONTINUED AT A DOSE OF 1000 MG/M2 DAI+
     Route: 048
     Dates: start: 20070215

REACTIONS (1)
  - OSTEONECROSIS [None]
